FAERS Safety Report 23714072 (Version 2)
Quarter: 2024Q2

REPORT INFORMATION
  Report Type: Report from Study
  Country: CA (occurrence: None)
  Receive Date: 20240405
  Receipt Date: 20240417
  Transmission Date: 20240716
  Serious: Yes (Other)
  Sender: FDA-Public Use
  Company Number: 2024A063279

PATIENT
  Sex: Male

DRUGS (1)
  1. IMFINZI [Suspect]
     Active Substance: DURVALUMAB
     Indication: HER2 positive biliary tract cancer
     Route: 042
     Dates: start: 20240221

REACTIONS (2)
  - Renal colic [Unknown]
  - Urinary tract infection [Unknown]
